FAERS Safety Report 20907846 (Version 1)
Quarter: 2022Q2

REPORT INFORMATION
  Report Type: Spontaneous
  Country: IT (occurrence: IT)
  Receive Date: 20220602
  Receipt Date: 20220602
  Transmission Date: 20220721
  Serious: Yes (Hospitalization, Other)
  Sender: FDA-Public Use
  Company Number: IT-SA-2018SA263395

PATIENT
  Age: 80 Year
  Sex: Female

DRUGS (5)
  1. DILTIAZEM HYDROCHLORIDE [Suspect]
     Active Substance: DILTIAZEM HYDROCHLORIDE
     Indication: Product administration error
     Route: 048
     Dates: start: 20180901, end: 20180901
  2. FUROSEMIDE [Suspect]
     Active Substance: FUROSEMIDE
     Indication: Product administration error
     Route: 048
     Dates: start: 20180901, end: 20180901
  3. IRBESARTAN [Suspect]
     Active Substance: IRBESARTAN
     Indication: Product administration error
     Route: 048
     Dates: start: 20180901, end: 20180901
  4. BISOPROLOL FUMARATE [Suspect]
     Active Substance: BISOPROLOL FUMARATE
     Indication: Product administration error
     Route: 048
     Dates: start: 20180901, end: 20180901
  5. EDOXABAN [Suspect]
     Active Substance: EDOXABAN
     Indication: Product administration error
     Route: 048
     Dates: start: 20180901, end: 20180901

REACTIONS (2)
  - Bradycardia [Recovering/Resolving]
  - Medication error [Unknown]

NARRATIVE: CASE EVENT DATE: 20180901
